FAERS Safety Report 17776551 (Version 1)
Quarter: 2020Q2

REPORT INFORMATION
  Report Type: Report from Study
  Country: US (occurrence: US)
  Receive Date: 20200513
  Receipt Date: 20200513
  Transmission Date: 20200714
  Serious: Yes (Death, Other)
  Sender: FDA-Public Use
  Company Number: US-ACADIA PHARMACEUTICALS INC.-ACA-2019-013770

PATIENT
  Age: 66 Year
  Sex: Male
  Weight: 97 kg

DRUGS (6)
  1. GABAPENTIN. [Concomitant]
     Active Substance: GABAPENTIN
     Indication: DIABETES MELLITUS
     Dosage: 300 MG, QHS
  2. METFORMIN [Concomitant]
     Active Substance: METFORMIN HYDROCHLORIDE
     Indication: DIABETES MELLITUS
     Dosage: 1000 MG, QHS
  3. RYTARY [Concomitant]
     Active Substance: CARBIDOPA\LEVODOPA
     Indication: PARKINSON^S DISEASE
     Dosage: 61.25-245 MG, 2 CAPS QID
     Dates: start: 20181128
  4. NUPLAZID [Suspect]
     Active Substance: PIMAVANSERIN TARTRATE
     Indication: PARKINSON^S DISEASE PSYCHOSIS
     Dosage: 34 MG, QD
     Dates: start: 20190502, end: 20190730
  5. RIVASTIGMINE. [Concomitant]
     Active Substance: RIVASTIGMINE
     Indication: DEMENTIA
     Dosage: 1.5 MG BID, 1 TAB BID
     Dates: start: 20190211
  6. LISINOPRIL. [Concomitant]
     Active Substance: LISINOPRIL
     Indication: HYPERTENSION
     Dosage: 10 MG, QD

REACTIONS (1)
  - Failure to thrive [Fatal]

NARRATIVE: CASE EVENT DATE: 20190730
